FAERS Safety Report 8288408-8 (Version None)
Quarter: 2012Q2

REPORT INFORMATION
  Report Type: 
  Country: None (occurrence: None)
  Receive Date: 20120416
  Receipt Date: 20120405
  Transmission Date: 20120825
  Serious: Yes (Death, Hospitalization)
  Sender: FDA-Public Use
  Company Number: FR-BAXTER-2011BH032920

PATIENT
  Sex: Female

DRUGS (3)
  1. FLUDARABINE PHOSPHATE [Suspect]
     Route: 042
     Dates: start: 20100101, end: 20100601
  2. MABTHERA [Suspect]
     Route: 042
     Dates: start: 20100101, end: 20100827
  3. CYCLOPHOSPHAMIDE [Suspect]
     Route: 042
     Dates: start: 20100101, end: 20100601

REACTIONS (1)
  - PROGRESSIVE MULTIFOCAL LEUKOENCEPHALOPATHY [None]
